FAERS Safety Report 7345991-4 (Version None)
Quarter: 2011Q1

REPORT INFORMATION
  Report Type: 
  Country: None (occurrence: None)
  Receive Date: 20110308
  Receipt Date: 20110308
  Transmission Date: 20110831
  Serious: Yes (Other)
  Sender: FDA-Public Use
  Company Number: None

PATIENT
  Age: 3 Year
  Sex: Female
  Weight: 14.0615 kg

DRUGS (1)
  1. OSELTAMIVIR [Suspect]
     Indication: INFLUENZA
     Dosage: 2 ML TWICE DAILY PO
     Route: 048
     Dates: start: 20110301, end: 20110303

REACTIONS (10)
  - TONGUE DISORDER [None]
  - PSYCHOMOTOR HYPERACTIVITY [None]
  - CRYING [None]
  - AGGRESSION [None]
  - MIDDLE INSOMNIA [None]
  - RESTLESSNESS [None]
  - SCREAMING [None]
  - HALLUCINATION, VISUAL [None]
  - COUGH [None]
  - FEELING HOT [None]
